FAERS Safety Report 6521741-6 (Version None)
Quarter: 2009Q4

REPORT INFORMATION
  Report Type: 
  Country: None (occurrence: None)
  Receive Date: 20091214
  Receipt Date: 20090730
  Transmission Date: 20100525
  Serious: Yes (Hospitalization)
  Sender: FDA-Public Use
  Company Number: 647519

PATIENT
  Age: 42 Year
  Sex: Female
  Weight: 77.1 kg

DRUGS (3)
  1. PEGASYS [Suspect]
     Indication: HEPATITIS C
     Dosage: 180 UG 1 PER WEEK SUBCUTANEOUS
     Route: 058
     Dates: start: 20061025, end: 20090915
  2. COPEGUS [Suspect]
     Indication: HEPATITIS C
     Dosage: 800 MG DAILY
     Dates: start: 20061025, end: 20070215
  3. REBETOL [Suspect]
     Indication: HEPATITIS C
     Dosage: 600 MG 2 PER DAY
     Dates: start: 20090724, end: 20090901

REACTIONS (8)
  - ANAEMIA [None]
  - ARTHRALGIA [None]
  - DIARRHOEA [None]
  - LEUKOPENIA [None]
  - MYALGIA [None]
  - NAUSEA [None]
  - PAIN [None]
  - PNEUMONIA [None]
